FAERS Safety Report 14715485 (Version 1)
Quarter: 2018Q2

REPORT INFORMATION
  Report Type: Spontaneous
  Country: GB (occurrence: GB)
  Receive Date: 20180404
  Receipt Date: 20180404
  Transmission Date: 20180711
  Serious: Yes (Disabling, Other)
  Sender: FDA-Public Use
  Company Number: GB-MYLANLABS-2018M1020391

PATIENT
  Age: 32 Year
  Sex: Male
  Weight: 73 kg

DRUGS (6)
  1. COCODAMOL [Concomitant]
     Active Substance: ACETAMINOPHEN\CODEINE PHOSPHATE
     Indication: HEADACHE
     Dosage: 8MG/500MG, 1 OR 2 4 TIMES A DAY
     Dates: start: 20170911
  2. NICOTINE. [Concomitant]
     Active Substance: NICOTINE
     Indication: PRODUCT USED FOR UNKNOWN INDICATION
     Dosage: PLEASE READ INFORMATION LEAFLET.
     Dates: start: 20170911
  3. ZOPICLONE [Concomitant]
     Active Substance: ZOPICLONE
     Indication: SLEEP DISORDER
     Dosage: ONE AT NIGHT WHEN REQUIRED TO SLEEP
     Dates: start: 20170927
  4. BECONASE AQ [Concomitant]
     Active Substance: BECLOMETHASONE DIPROPIONATE MONOHYDRATE
     Indication: PRODUCT USED FOR UNKNOWN INDICATION
     Dosage: TWO SQUIRTS EACH NOSTRIL TWICE A DAY
     Route: 045
     Dates: start: 20170727
  5. TOPIRAMATE. [Suspect]
     Active Substance: TOPIRAMATE
     Indication: HEADACHE
     Dosage: 50 MG, QD
     Route: 065
     Dates: start: 20170927, end: 20171004
  6. HYDROCORTISONE. [Concomitant]
     Active Substance: HYDROCORTISONE
     Indication: PRODUCT USED FOR UNKNOWN INDICATION
     Dosage: FOR SHINS
     Dates: start: 20170927

REACTIONS (5)
  - Speech disorder [Unknown]
  - Malaise [Unknown]
  - Disturbance in attention [Unknown]
  - Confusional state [Unknown]
  - Dizziness [Recovered/Resolved]
